FAERS Safety Report 20309137 (Version 1)
Quarter: 2022Q1

REPORT INFORMATION
  Report Type: Spontaneous
  Country: BR (occurrence: BR)
  Receive Date: 20220107
  Receipt Date: 20220107
  Transmission Date: 20220423
  Serious: Yes (Other)
  Sender: FDA-Public Use
  Company Number: BR-TEVA-2022-BR-1996873

PATIENT
  Age: 86 Year
  Sex: Male
  Weight: 60 kg

DRUGS (4)
  1. AZILECT [Suspect]
     Active Substance: RASAGILINE MESYLATE
     Indication: Parkinson^s disease
     Dosage: 1 MILLIGRAM DAILY;
     Route: 048
     Dates: start: 2021
  2. BENSERAZIDE\LEVODOPA [Suspect]
     Active Substance: BENSERAZIDE\LEVODOPA
     Route: 065
  3. redemic [Concomitant]
     Indication: Pollakiuria
     Dates: start: 2021
  4. ATROPINE [Concomitant]
     Active Substance: ATROPINE
     Dosage: 1 DROP A DAY

REACTIONS (5)
  - Pharyngeal swelling [Unknown]
  - Dysarthria [Unknown]
  - Pharyngitis [Unknown]
  - Dyskinesia [Unknown]
  - Somnolence [Unknown]

NARRATIVE: CASE EVENT DATE: 20211228
